FAERS Safety Report 8330478-2 (Version None)
Quarter: 2012Q2

REPORT INFORMATION
  Report Type: 
  Country: None (occurrence: None)
  Receive Date: 20120502
  Receipt Date: 20120403
  Transmission Date: 20120825
  Serious: No
  Sender: FDA-Public Use
  Company Number: US-AMGEN-USASP2012021230

PATIENT
  Sex: Female

DRUGS (6)
  1. KLOR-CON [Concomitant]
     Dosage: UNK
  2. ESTRADIOL TRANSDERMAL [Concomitant]
     Dosage: UNK
  3. VICODIN [Concomitant]
     Dosage: UNK
  4. DIOVAN [Concomitant]
     Dosage: UNK
  5. ENBREL [Suspect]
     Indication: RHEUMATOID ARTHRITIS
     Dosage: 50 MG, QWK
  6. LYRICA [Concomitant]
     Dosage: UNK

REACTIONS (1)
  - INCREASED TENDENCY TO BRUISE [None]
